FAERS Safety Report 10203708 (Version 1)
Quarter: 2014Q2

REPORT INFORMATION
  Report Type: Spontaneous
  Country: PT (occurrence: PT)
  Receive Date: 20140529
  Receipt Date: 20140529
  Transmission Date: 20141212
  Serious: Yes (Other)
  Sender: FDA-Public Use
  Company Number: PT-JNJFOC-20140515075

PATIENT
  Age: 32 Year
  Sex: Female

DRUGS (2)
  1. REMICADE [Suspect]
     Indication: COLITIS ULCERATIVE
     Route: 042
     Dates: start: 201309, end: 201403
  2. SALOFALK [Concomitant]
     Route: 065

REACTIONS (2)
  - Alopecia areata [Recovering/Resolving]
  - Rash pruritic [Recovering/Resolving]
